FAERS Safety Report 23332407 (Version 1)
Quarter: 2023Q4

REPORT INFORMATION
  Report Type: Spontaneous
  Country: CN (occurrence: CN)
  Receive Date: 20231222
  Receipt Date: 20231222
  Transmission Date: 20240110
  Serious: Yes (Hospitalization)
  Sender: FDA-Public Use
  Company Number: CN-PFIZER INC-PV202300203546

PATIENT
  Age: 10 Year
  Sex: Male
  Weight: 32 kg

DRUGS (1)
  1. METHOTREXATE SODIUM [Suspect]
     Active Substance: METHOTREXATE SODIUM
     Indication: Acute lymphocytic leukaemia
     Dosage: 3 G, 1X/DAY
     Dates: start: 20231122, end: 20231122

REACTIONS (4)
  - Rash erythematous [Recovering/Resolving]
  - Mucosal erosion [Recovering/Resolving]
  - Mouth ulceration [Recovering/Resolving]
  - Anal ulcer [Recovering/Resolving]

NARRATIVE: CASE EVENT DATE: 20231128
